FAERS Safety Report 5154317-6 (Version None)
Quarter: 2006Q4

REPORT INFORMATION
  Report Type: 
  Country: None (occurrence: None)
  Receive Date: 20061114
  Receipt Date: 20061030
  Transmission Date: 20070319
  Serious: Yes (Hospitalization)
  Sender: FDA-Public Use
  Company Number: GXKR2006GB06808

PATIENT
  Age: 40 Year
  Sex: Female

DRUGS (3)
  1. FLUOXETINE (NGX) (FLUOXETINE) TABLET, 20MG [Suspect]
     Indication: POSTPARTUM DEPRESSION
     Dosage: 200 MG, ONCE/SINGLE, ORAL
     Route: 048
  2. CLOMIPRAMINE (CLOMIPRAMINE) TABLET, 50MG [Suspect]
     Indication: POSTPARTUM DEPRESSION
     Dosage: 650 MG, ONCE/SINGLE, ORAL
     Route: 048
  3. AMITRIPTYLINE HCL [Suspect]
     Indication: POSTPARTUM DEPRESSION
     Dosage: 5000 MG, ONCE/SINGLE, ORAL
     Route: 048

REACTIONS (15)
  - ALCOHOL POISONING [None]
  - BLOOD PH DECREASED [None]
  - CONFUSIONAL STATE [None]
  - DRUG LEVEL INCREASED [None]
  - DRUG TOXICITY [None]
  - DRY SKIN [None]
  - ELECTROCARDIOGRAM QRS COMPLEX PROLONGED [None]
  - GRAND MAL CONVULSION [None]
  - METABOLIC ACIDOSIS [None]
  - MULTIPLE DRUG OVERDOSE [None]
  - MYDRIASIS [None]
  - SINUS TACHYCARDIA [None]
  - SKIN WARM [None]
  - SOMNOLENCE [None]
  - VENTRICULAR TACHYCARDIA [None]
